FAERS Safety Report 10059908 (Version 2)
Quarter: 2014Q2

REPORT INFORMATION
  Report Type: Spontaneous
  Country: US (occurrence: US)
  Receive Date: 20140404
  Receipt Date: 20140501
  Transmission Date: 20141212
  Serious: Yes (Other)
  Sender: FDA-Public Use
  Company Number: US-GLAXOSMITHKLINE-A1067938A

PATIENT
  Age: 61 Year
  Sex: Male

DRUGS (1)
  1. VOTRIENT [Suspect]
     Indication: RENAL CELL CARCINOMA
     Route: 048

REACTIONS (5)
  - Nephrolithiasis [Unknown]
  - Calculus bladder [Unknown]
  - Blood urine present [Recovered/Resolved]
  - Stomatitis [Unknown]
  - Nasal ulcer [Unknown]
